FAERS Safety Report 6416702-1 (Version None)
Quarter: 2009Q4

REPORT INFORMATION
  Report Type: 
  Country: None (occurrence: None)
  Receive Date: 20091027
  Receipt Date: 20091015
  Transmission Date: 20100525
  Serious: Yes (Hospitalization)
  Sender: FDA-Public Use
  Company Number: FR-ELI_LILLY_AND_COMPANY-FR200909001332

PATIENT
  Age: 75 Year
  Sex: Male

DRUGS (5)
  1. ZYPREXA [Suspect]
     Indication: AGITATION
     Dosage: 5 MG, UNK
     Route: 030
     Dates: start: 20090901, end: 20090901
  2. ZYPREXA [Suspect]
     Dosage: 5 MG, OTHER
     Route: 030
     Dates: start: 20090903, end: 20090903
  3. TRILEPTAL [Concomitant]
     Indication: IMPULSIVE BEHAVIOUR
     Dosage: 600 MG, UNK
     Route: 048
     Dates: start: 20090809, end: 20090910
  4. IMOVANE [Concomitant]
     Indication: INSOMNIA
     Dosage: 7.5 MG, DAILY (1/D)
     Route: 048
     Dates: start: 20090728, end: 20090910
  5. TAREG [Concomitant]
     Indication: HYPERTENSION
     Dosage: 160 MG, DAILY (1/D)
     Route: 048
     Dates: start: 20090728, end: 20090910

REACTIONS (2)
  - PRURITUS [None]
  - RASH MACULO-PAPULAR [None]
